FAERS Safety Report 5218037-1 (Version None)
Quarter: 2007Q1

REPORT INFORMATION
  Report Type: 
  Country: None (occurrence: None)
  Receive Date: 20061130
  Receipt Date: 20060731
  Transmission Date: 20070707
  Serious: Yes (Hospitalization)
  Sender: FDA-Public Use
  Company Number: US200602002195

PATIENT
  Age: 51 Year
  Sex: Female
  Weight: 104.3 kg

DRUGS (6)
  1. ZYPREXA [Suspect]
     Indication: DEPRESSION
     Dosage: 15 MG
     Dates: start: 20030901, end: 20040601
  2. ABILIFY [Concomitant]
  3. HALDOL SOLUTAB [Concomitant]
  4. DEPAKOTE [Concomitant]
  5. CELEXA [Concomitant]
  6. MICROZIDE [Concomitant]

REACTIONS (2)
  - BLOOD CHOLESTEROL ABNORMAL [None]
  - DIABETES MELLITUS NON-INSULIN-DEPENDENT [None]
